FAERS Safety Report 21131639 (Version 1)
Quarter: 2022Q3

REPORT INFORMATION
  Report Type: Spontaneous
  Country: GB (occurrence: GB)
  Receive Date: 20220726
  Receipt Date: 20220726
  Transmission Date: 20221027
  Serious: Yes (Other)
  Sender: FDA-Public Use
  Company Number: GB-MHRA-MED-202207111024020740-WQYLH

PATIENT
  Age: 64 Year
  Weight: 114 kg

DRUGS (1)
  1. DOTAREM [Suspect]
     Active Substance: GADOTERATE MEGLUMINE
     Indication: Product used for unknown indication
     Route: 065

REACTIONS (7)
  - Head discomfort [Unknown]
  - Chest pain [Recovering/Resolving]
  - Ocular hyperaemia [Unknown]
  - Headache [Unknown]
  - Abdominal pain upper [Unknown]
  - Hyperhidrosis [Unknown]
  - Chest discomfort [Unknown]
